FAERS Safety Report 8485876 (Version 2)
Quarter: 2013Q2

REPORT INFORMATION
  Report Type: Spontaneous
  Country: FR (occurrence: FR)
  Receive Date: 20120330
  Receipt Date: 20130503
  Transmission Date: 20140414
  Serious: Yes (Life-Threatening, Hospitalization)
  Sender: FDA-Public Use
  Company Number: FR-ASTRAZENECA-2012SE20573

PATIENT
  Age: 46 Year
  Sex: Female

DRUGS (5)
  1. DIPRIVAN [Suspect]
     Indication: ANAESTHESIA
     Route: 042
     Dates: start: 20120314, end: 20120314
  2. ULTIVA [Suspect]
     Indication: ANAESTHESIA
     Route: 042
     Dates: start: 20120314, end: 20120314
  3. ESMERON [Suspect]
     Indication: ANAESTHESIA
     Route: 042
     Dates: start: 20120314, end: 20120314
  4. HYPNOVEL [Suspect]
     Indication: ANAESTHESIA
     Route: 042
     Dates: start: 20120314, end: 20120314
  5. TENORMINE [Concomitant]

REACTIONS (1)
  - Shock [Recovered/Resolved]
